FAERS Safety Report 4619949-X (Version None)
Quarter: 2005Q1

REPORT INFORMATION
  Report Type: 
  Country: None (occurrence: None)
  Receive Date: 20050323
  Receipt Date: 20050323
  Transmission Date: 20050727
  Serious: Yes (Other)
  Sender: FDA-Public Use
  Company Number: None

PATIENT
  Age: 15 Year
  Sex: Female
  Weight: 90.7194 kg

DRUGS (1)
  1. LAMICTAL [Suspect]
     Dosage: AM (PO)
     Route: 048
     Dates: start: 20050311

REACTIONS (1)
  - RASH [None]
